FAERS Safety Report 20412437 (Version 1)
Quarter: 2022Q1

REPORT INFORMATION
  Report Type: Spontaneous
  Country: US (occurrence: US)
  Receive Date: 20220201
  Receipt Date: 20220201
  Transmission Date: 20220424
  Serious: No
  Sender: FDA-Public Use
  Company Number: US-AZURITY PHARMACEUTICALS, INC.-2021AZY00088

PATIENT
  Age: 44 Year
  Sex: Female
  Weight: 70.295 kg

DRUGS (1)
  1. FIRVANQ [Suspect]
     Active Substance: VANCOMYCIN HYDROCHLORIDE
     Indication: Clostridium difficile infection
     Dosage: 125 MG, 4X/DAY
     Route: 048
     Dates: start: 20210916, end: 20210917

REACTIONS (4)
  - Throat irritation [Recovered/Resolved]
  - Reaction to excipient [Recovered/Resolved]
  - Feeling hot [Recovered/Resolved]
  - Oropharyngeal pain [Recovered/Resolved]

NARRATIVE: CASE EVENT DATE: 20210901
